FAERS Safety Report 8470924-7 (Version None)
Quarter: 2012Q2

REPORT INFORMATION
  Report Type: 
  Country: None (occurrence: None)
  Receive Date: 20120323
  Receipt Date: 20110812
  Transmission Date: 20120825
  Serious: Yes (Hospitalization)
  Sender: FDA-Public Use
  Company Number: 163-21880-11081692

PATIENT
  Sex: Female

DRUGS (9)
  1. COMBIVENT (COMBIVVENT) [Concomitant]
  2. REVLIMID [Suspect]
     Dosage: 5 MG, DAILY FOR 14 DAYS, PO
     Route: 048
     Dates: start: 20100505
  3. NIASPAN [Concomitant]
  4. PRILOSEC [Concomitant]
  5. JANUVIA [Concomitant]
  6. MICRONASE [Concomitant]
  7. THEOPHYLLINE [Concomitant]
  8. FLEXERIL [Concomitant]
  9. ZOCOR [Concomitant]

REACTIONS (2)
  - PNEUMONIA [None]
  - BRONCHITIS CHRONIC [None]
